FAERS Safety Report 22046108 (Version 1)
Quarter: 2023Q1

REPORT INFORMATION
  Report Type: Spontaneous
  Country: US (occurrence: US)
  Receive Date: 20230228
  Receipt Date: 20230228
  Transmission Date: 20230417
  Serious: No
  Sender: FDA-Public Use
  Company Number: US-ALLERGAN-2204407US

PATIENT
  Sex: Female

DRUGS (1)
  1. ESTRADIOL [Suspect]
     Active Substance: ESTRADIOL
     Indication: Vulvovaginal burning sensation
     Dosage: UNK

REACTIONS (6)
  - Off label use [Unknown]
  - Expired product administered [Unknown]
  - Incorrect product administration duration [Unknown]
  - Vulvovaginal burning sensation [Recovered/Resolved]
  - Dizziness [Recovered/Resolved]
  - Product label issue [Unknown]
